FAERS Safety Report 8968945 (Version 1)
Quarter: 2012Q4

REPORT INFORMATION
  Report Type: 
  Country: US (occurrence: US)
  Receive Date: 20121218
  Receipt Date: 20121218
  Transmission Date: 20130627
  Serious: No
  Sender: FDA-Public Use
  Company Number: US-BRISTOL-MYERS SQUIBB COMPANY-16687600

PATIENT
  Age: 56 Year
  Sex: Male
  Weight: 145.12 kg

DRUGS (4)
  1. ABILIFY [Suspect]
     Indication: DEPRESSION
     Dates: start: 20111215, end: 201203
  2. CYMBALTA [Suspect]
     Indication: DEPRESSION
  3. XANAX [Concomitant]
     Indication: ANXIETY
  4. METHADONE [Concomitant]
     Indication: BACK PAIN

REACTIONS (2)
  - Tardive dyskinesia [Not Recovered/Not Resolved]
  - Nerve injury [Not Recovered/Not Resolved]
